FAERS Safety Report 8070950-6 (Version None)
Quarter: 2012Q1

REPORT INFORMATION
  Report Type: 
  Country: None (occurrence: None)
  Receive Date: 20120125
  Receipt Date: 20120118
  Transmission Date: 20120608
  Serious: Yes (Hospitalization, Other)
  Sender: FDA-Public Use
  Company Number: US-MERCK-1108USA00318

PATIENT
  Age: 64 Year
  Sex: Female
  Weight: 96 kg

DRUGS (4)
  1. BONIVA [Suspect]
     Indication: OSTEOPENIA
     Route: 048
     Dates: start: 20060307
  2. PREMARIN [Concomitant]
     Route: 048
     Dates: start: 19790101, end: 20051201
  3. FOSAMAX [Suspect]
     Indication: OSTEOPOROSIS
     Route: 048
     Dates: start: 20020401, end: 20060307
  4. SYNTHROID [Concomitant]
     Indication: HYPOTHYROIDISM
     Route: 065
     Dates: start: 19980101

REACTIONS (37)
  - CHEST PAIN [None]
  - ROTATOR CUFF SYNDROME [None]
  - NAUSEA [None]
  - MEMORY IMPAIRMENT [None]
  - PULMONARY VALVE INCOMPETENCE [None]
  - LEFT VENTRICULAR HYPERTROPHY [None]
  - VENTRICULAR EXTRASYSTOLES [None]
  - DIZZINESS [None]
  - FEMUR FRACTURE [None]
  - OSTEOPENIA [None]
  - MITRAL VALVE INCOMPETENCE [None]
  - DYSLIPIDAEMIA [None]
  - PULMONARY GRANULOMA [None]
  - VERTIGO [None]
  - OROPHARYNGEAL PAIN [None]
  - ANXIETY DISORDER [None]
  - ANKLE FRACTURE [None]
  - MALAISE [None]
  - DEAFNESS NEUROSENSORY [None]
  - PULMONARY EMBOLISM [None]
  - HEADACHE [None]
  - RHINITIS ALLERGIC [None]
  - LIBIDO DECREASED [None]
  - VIRAL INFECTION [None]
  - EMBOLISM [None]
  - HYPERTENSION [None]
  - DYSPEPSIA [None]
  - TRICUSPID VALVE INCOMPETENCE [None]
  - HIATUS HERNIA [None]
  - HYPERLIPIDAEMIA [None]
  - BRONCHITIS [None]
  - TINNITUS [None]
  - STRESS URINARY INCONTINENCE [None]
  - OSTEOARTHRITIS [None]
  - DYSPHAGIA [None]
  - PHARYNGITIS [None]
  - SINUS CONGESTION [None]
